FAERS Safety Report 7779262-9 (Version None)
Quarter: 2011Q3

REPORT INFORMATION
  Report Type: 
  Country: None (occurrence: None)
  Receive Date: 20110926
  Receipt Date: 20110916
  Transmission Date: 20111222
  Serious: Yes (Hospitalization)
  Sender: FDA-Public Use
  Company Number: JP-AMGEN-KDC433621

PATIENT
  Age: 63 Year
  Sex: Male
  Weight: 57 kg

DRUGS (28)
  1. PANITUMUMAB [Suspect]
     Dosage: 4.8 MG/KG, Q2WK
     Route: 041
     Dates: start: 20101018, end: 20101018
  2. HICEE [Concomitant]
     Dosage: 3 G, QD
     Route: 048
  3. TSUMURA HOCHU EKKI-TO [Concomitant]
     Route: 048
  4. TSUMURA SHAKUYAKUKANZOUTOU [Concomitant]
     Route: 048
  5. ANTIHISTAMINES [Concomitant]
     Indication: PROPHYLAXIS
     Route: 065
  6. PANITUMUMAB [Suspect]
     Indication: PROPHYLAXIS
     Dosage: 6 MG/KG, Q2WK
     Route: 041
     Dates: start: 20100804, end: 20100804
  7. URSO 250 [Concomitant]
     Route: 048
  8. PANITUMUMAB [Suspect]
     Dosage: 3.6 MG/KG, Q2WK
     Route: 041
     Dates: start: 20101117, end: 20101117
  9. IRINOTECAN HCL [Suspect]
     Indication: COLORECTAL CANCER
     Dosage: 200 MG, Q2WK
     Route: 041
     Dates: start: 20100804
  10. FLUOROURACIL [Concomitant]
     Route: 041
     Dates: start: 20100804, end: 20101208
  11. PANITUMUMAB [Suspect]
     Dosage: 2.4 MG/KG, Q2WK
     Route: 041
     Dates: start: 20110323, end: 20110323
  12. FLUOROURACIL [Concomitant]
     Indication: COLORECTAL CANCER
     Route: 040
     Dates: start: 20100804, end: 20101208
  13. TSUMURA GOSHAJINKIGAN [Concomitant]
     Route: 048
  14. LIVACT [Concomitant]
     Dosage: 3 UNK, QD
     Route: 048
  15. JUSO [Concomitant]
     Dosage: 1.8 G, QD
     Route: 048
  16. PANITUMUMAB [Suspect]
     Dosage: 3.6 MG/KG, Q2WK
     Route: 041
     Dates: start: 20101018, end: 20101018
  17. PANITUMUMAB [Suspect]
     Dosage: 2.4 MG/KG, Q2WK
     Route: 041
     Dates: start: 20101208, end: 20101208
  18. PANITUMUMAB [Suspect]
     Dosage: 3.6 MG/KG, Q2WK
     Route: 041
     Dates: start: 20110408
  19. LEUCOVORIN CALCIUM [Concomitant]
     Indication: COLORECTAL CANCER
     Route: 041
     Dates: start: 20100804, end: 20101208
  20. LASIX [Concomitant]
     Route: 048
  21. PANITUMUMAB [Suspect]
     Dosage: 4.8 MG/KG, Q2WK
     Route: 041
     Dates: start: 20100824, end: 20101004
  22. CORTICOSTEROID NOS [Concomitant]
     Indication: PROPHYLAXIS
     Dosage: UNK UNK, UNK
     Route: 065
  23. ALDACTONE [Concomitant]
     Dosage: 25 MG, QD
     Route: 048
  24. LANSOPRAZOLE [Concomitant]
     Dosage: UNK UNK, UNK
     Route: 048
  25. SULFAMETHOXAZOLE [Concomitant]
     Dosage: .5 G, QD
     Route: 048
  26. PREDNISOLONE [Concomitant]
     Route: 048
  27. MAGNESIUM OXIDE [Concomitant]
     Dosage: 1.5 G, QD
     Route: 048
  28. MOTILIUM [Concomitant]
     Route: 065

REACTIONS (6)
  - WHITE BLOOD CELL COUNT DECREASED [None]
  - LIP ULCERATION [None]
  - MALAISE [None]
  - MOUTH ULCERATION [None]
  - DECREASED APPETITE [None]
  - SPINAL COMPRESSION FRACTURE [None]
